FAERS Safety Report 15271775 (Version 1)
Quarter: 2018Q4

REPORT INFORMATION
  Report Type: Spontaneous
  Country: ES (occurrence: ES)
  Receive Date: 20180813
  Receipt Date: 20180813
  Transmission Date: 20190204
  Serious: Yes (Hospitalization)
  Sender: FDA-Public Use
  Company Number: PHHY2018ES069995

PATIENT
  Age: 75 Year
  Sex: Male
  Weight: 70 kg

DRUGS (2)
  1. CLOXACILINA NORMON [Interacting]
     Active Substance: CLOXACILLIN SODIUM
     Indication: BACTERAEMIA
     Route: 042
     Dates: start: 20180130, end: 20180215
  2. RIFAMPICIN [Suspect]
     Active Substance: RIFAMPIN
     Indication: BACTERAEMIA
     Route: 042
     Dates: start: 20180130, end: 20180208

REACTIONS (2)
  - Hypertransaminasaemia [Recovering/Resolving]
  - Cholestasis [Recovering/Resolving]

NARRATIVE: CASE EVENT DATE: 20180206
